FAERS Safety Report 6893275-0 (Version None)
Quarter: 2010Q3

REPORT INFORMATION
  Report Type: 
  Country: None (occurrence: None)
  Receive Date: 20100731
  Receipt Date: 20090713
  Transmission Date: 20110219
  Serious: Yes (Other)
  Sender: FDA-Public Use
  Company Number: US-PFIZER INC-2008037845

PATIENT
  Sex: Male

DRUGS (2)
  1. NEURONTIN [Suspect]
     Indication: PHANTOM PAIN
  2. LYRICA [Suspect]
     Indication: PHANTOM PAIN
     Dosage: 100 MG, 3X/DAY
     Dates: start: 20080101

REACTIONS (2)
  - ASTHMA [None]
  - DRUG INEFFECTIVE [None]
